FAERS Safety Report 7841363 (Version 4)
Quarter: 2012Q4

REPORT INFORMATION
  Report Type: 
  Country: US (occurrence: US)
  Receive Date: 20110304
  Receipt Date: 20120919
  Transmission Date: 20130627
  Serious: Yes (Hospitalization, Other)
  Sender: FDA-Public Use
  Company Number: US-PFIZER INC-2009302274

PATIENT
  Age: 62 Year
  Sex: Female
  Weight: 58 kg

DRUGS (8)
  1. DILANTIN [Suspect]
     Indication: CONVULSION
     Dosage: 300 mg, UNK
     Dates: end: 20090715
  2. DECADRON [Concomitant]
     Dosage: 4 mg, 3x/day
     Route: 048
  3. PROCARDIA XL [Concomitant]
     Dosage: 90 mg, UNK
     Route: 048
  4. PROCHLORPERAZINE [Concomitant]
     Dosage: UNK
     Route: 048
  5. XELODA [Concomitant]
     Dosage: UNK
     Route: 048
  6. PROMETHAZINE [Concomitant]
     Dosage: UNK
  7. VASOTEC [Concomitant]
     Dosage: 10 mg, UNK
     Route: 048
  8. ZOFRAN [Concomitant]
     Dosage: 4-8mg

REACTIONS (1)
  - Stevens-Johnson syndrome [Recovered/Resolved]
